FAERS Safety Report 12383540 (Version 1)
Quarter: 2016Q2

REPORT INFORMATION
  Report Type: Spontaneous
  Country: AT (occurrence: AT)
  Receive Date: 20160518
  Receipt Date: 20160518
  Transmission Date: 20160815
  Serious: Yes (Life-Threatening, Hospitalization, Disabling)
  Sender: FDA-Public Use
  Company Number: AT-DSJP-DSE-2016-115921

PATIENT

DRUGS (1)
  1. SEVIKAR HCT 40 MG/10 MG/25 MG [Suspect]
     Active Substance: AMLODIPINE BESYLATE\HYDROCHLOROTHIAZIDE\OLMESARTAN MEDOXOMIL
     Indication: HYPERTENSION
     Dosage: 40/10/25MG, SINGLE
     Route: 048
     Dates: start: 20160422, end: 20160422

REACTIONS (3)
  - Choking [Recovered/Resolved]
  - Cerebrovascular accident [Recovered/Resolved with Sequelae]
  - Angioedema [Recovered/Resolved with Sequelae]

NARRATIVE: CASE EVENT DATE: 20160422
